FAERS Safety Report 16758931 (Version 1)
Quarter: 2019Q4

REPORT INFORMATION
  Report Type: Spontaneous
  Country: US (occurrence: US)
  Receive Date: 20190829
  Receipt Date: 20190829
  Transmission Date: 20200122
  Serious: No
  Sender: FDA-Public Use
  Company Number: None

PATIENT
  Age: 34 Year
  Sex: Female
  Weight: 93.4 kg

DRUGS (2)
  1. MEPEREDINE 12,5 MG [Concomitant]
     Dates: start: 20190828, end: 20190828
  2. INJECTAFER [Suspect]
     Active Substance: FERRIC CARBOXYMALTOSE
     Indication: IRON DEFICIENCY ANAEMIA
     Dosage: ?          OTHER FREQUENCY:ONE TIME INFUSION;?
     Route: 041
     Dates: start: 20190828, end: 20190828

REACTIONS (4)
  - Fatigue [None]
  - Chills [None]
  - Infusion related reaction [None]
  - Dyspnoea [None]

NARRATIVE: CASE EVENT DATE: 20190828
